FAERS Safety Report 7511419-4 (Version None)
Quarter: 2011Q2

REPORT INFORMATION
  Report Type: 
  Country: None (occurrence: None)
  Receive Date: 20110531
  Receipt Date: 20110517
  Transmission Date: 20111010
  Serious: Yes (Hospitalization)
  Sender: FDA-Public Use
  Company Number: PHFR2011GB02800

PATIENT
  Sex: Male

DRUGS (1)
  1. CLOZARIL [Suspect]
     Indication: SCHIZOPHRENIA
     Route: 048
     Dates: start: 19951110

REACTIONS (7)
  - ALCOHOLIC [None]
  - TYPE 1 DIABETES MELLITUS [None]
  - BLOOD GLUCOSE INCREASED [None]
  - ALCOHOL POISONING [None]
  - PALLOR [None]
  - BLOOD GLUCOSE DECREASED [None]
  - OXYGEN SATURATION DECREASED [None]
